FAERS Safety Report 8906378 (Version 1)
Quarter: 2012Q4

REPORT INFORMATION
  Report Type: Spontaneous
  Country: US (occurrence: None)
  Receive Date: 20121112
  Receipt Date: 20121112
  Transmission Date: 20130627
  Serious: Yes (Life-Threatening, Other)
  Sender: FDA-Public Use
  Company Number: None

PATIENT
  Age: 33 Year
  Sex: Female
  Weight: 115.21 kg

DRUGS (1)
  1. LOESTRIN [Suspect]
     Indication: BIRTH CONTROL
     Dosage: 1mg/10mg/10mcg 1 a day oral
     Dates: start: 20120810

REACTIONS (4)
  - Blood glucose increased [None]
  - Anxiety [None]
  - Headache [None]
  - Glycosylated haemoglobin increased [None]
